FAERS Safety Report 5899282-9 (Version None)
Quarter: 2008Q3

REPORT INFORMATION
  Report Type: 
  Country: None (occurrence: None)
  Receive Date: 20080925
  Receipt Date: 20080917
  Transmission Date: 20090109
  Serious: Yes (Hospitalization)
  Sender: FDA-Public Use
  Company Number: IT-MERCK-0809ITA00030

PATIENT
  Age: 67 Year
  Sex: Female

DRUGS (2)
  1. JANUVIA [Suspect]
     Route: 048
     Dates: start: 20080501
  2. METFORMIN [Concomitant]
     Route: 048

REACTIONS (1)
  - ENCEPHALITIS [None]
